FAERS Safety Report 7962517 (Version 2)
Quarter: 2012Q4

REPORT INFORMATION
  Report Type: 
  Country: US (occurrence: US)
  Receive Date: 20110526
  Receipt Date: 20121116
  Transmission Date: 20130627
  Serious: Yes (Hospitalization, Other)
  Sender: FDA-Public Use
  Company Number: US-NAPPMUNDI-USA-2011-0068230

PATIENT
  Age: 83 Year
  Sex: Female

DRUGS (2)
  1. OXYCODONE HYDROCHLORIDE (SIMILAR TO NDA 22-272) [Suspect]
     Indication: PRODUCT USED FOR UNKNOWN INDICATION
     Dosage: 40 mg, daily
  2. HYDROCODONE [Suspect]
     Indication: PRODUCT USED FOR UNKNOWN INDICATION
     Dosage: UNK

REACTIONS (11)
  - Brain natriuretic peptide increased [Unknown]
  - Troponin increased [Unknown]
  - Agitation [Recovering/Resolving]
  - Confusional state [Recovering/Resolving]
  - Hypotension [Recovering/Resolving]
  - Drug withdrawal syndrome [Recovering/Resolving]
  - Stress cardiomyopathy [Recovering/Resolving]
  - Torsade de pointes [Recovering/Resolving]
  - Electrocardiogram QT prolonged [Recovering/Resolving]
  - Dyspnoea [Recovering/Resolving]
  - Hypoxia [Recovering/Resolving]
